FAERS Safety Report 21603046 (Version 1)
Quarter: 2022Q4

REPORT INFORMATION
  Report Type: Spontaneous
  Country: US (occurrence: US)
  Receive Date: 20221116
  Receipt Date: 20221116
  Transmission Date: 20230113
  Serious: No
  Sender: FDA-Public Use
  Company Number: US-PERRIGO-21US029862

PATIENT
  Age: 88 Year
  Sex: Female
  Weight: 45.351 kg

DRUGS (9)
  1. POLYETHYLENE GLYCOL 3350 [Suspect]
     Active Substance: POLYETHYLENE GLYCOL 3350
     Indication: Constipation
     Dosage: 17 G, QD
     Route: 048
  2. CLARITIN                           /00413701/ [Concomitant]
     Indication: Hypersensitivity
     Dosage: UNK
     Route: 065
     Dates: start: 2020
  3. METOPROLOL [Concomitant]
     Active Substance: METOPROLOL
     Indication: Tachycardia
     Dosage: UNK
     Route: 065
     Dates: start: 2020
  4. CLONAZEPAM [Concomitant]
     Active Substance: CLONAZEPAM
     Indication: Insomnia
     Dosage: UNK
     Route: 065
  5. MECLIZINE                          /00072801/ [Concomitant]
     Indication: Tachycardia
     Dosage: UNK
     Route: 065
     Dates: start: 2021
  6. BIOTIN [Concomitant]
     Active Substance: BIOTIN
     Indication: Supplementation therapy
     Dosage: UNK
     Route: 065
     Dates: start: 2019
  7. B12                                /00056201/ [Concomitant]
     Indication: Anaemia vitamin B12 deficiency
     Dosage: UNK
     Route: 065
     Dates: start: 2020
  8. VITAMIN D                          /00107901/ [Concomitant]
     Indication: Vitamin D decreased
     Dosage: UNK
     Route: 065
  9. CALCIUM [Concomitant]
     Active Substance: CALCIUM
     Indication: Osteoporosis
     Dosage: UNK
     Route: 065

REACTIONS (2)
  - Therapeutic product effect decreased [Unknown]
  - Incorrect product administration duration [Not Recovered/Not Resolved]

NARRATIVE: CASE EVENT DATE: 20211001
